FAERS Safety Report 24847174 (Version 2)
Quarter: 2025Q1

REPORT INFORMATION
  Report Type: Spontaneous
  Country: US (occurrence: US)
  Receive Date: 20250116
  Receipt Date: 20250128
  Transmission Date: 20250408
  Serious: Yes (Life-Threatening, Hospitalization, Other)
  Sender: AUROBINDO
  Company Number: US-MLMSERVICE-20241226-PI324722-00189-1

PATIENT
  Age: 49 Year
  Sex: Male

DRUGS (3)
  1. LACTULOSE [Suspect]
     Active Substance: LACTULOSE
     Indication: Encephalopathy
     Route: 065
  2. RIFAXIMIN [Concomitant]
     Active Substance: RIFAXIMIN
     Indication: Encephalopathy
     Route: 065
  3. MIRALAX [Concomitant]
     Active Substance: POLYETHYLENE GLYCOL 3350
     Indication: Encephalopathy
     Route: 065

REACTIONS (1)
  - Colitis ischaemic [Recovering/Resolving]
